FAERS Safety Report 9382090 (Version 1)
Quarter: 2013Q3

REPORT INFORMATION
  Report Type: Spontaneous
  Country: US (occurrence: US)
  Receive Date: 20130703
  Receipt Date: 20130703
  Transmission Date: 20140515
  Serious: Yes (Other)
  Sender: FDA-Public Use
  Company Number: US-ELI_LILLY_AND_COMPANY-US201306009274

PATIENT
  Sex: 0

DRUGS (1)
  1. GEMZAR [Suspect]
     Indication: BLADDER CANCER
     Dosage: UNK

REACTIONS (1)
  - Gastrointestinal toxicity [Unknown]
